FAERS Safety Report 4313909-4 (Version None)
Quarter: 2004Q1

REPORT INFORMATION
  Report Type: 
  Country: None (occurrence: None)
  Receive Date: 20040305
  Receipt Date: 20040220
  Transmission Date: 20041129
  Serious: Yes (Hospitalization)
  Sender: FDA-Public Use
  Company Number: 2004-BL-00035BL

PATIENT
  Sex: Male

DRUGS (6)
  1. PERSANTINE RETARD (DIPYRIDAMOLE) (KAR) [Suspect]
     Indication: CORONARY ARTERY SURGERY
     Dosage: 400 MG (200 MG, 1 IN 12 HR)
     Route: 048
     Dates: start: 20040125, end: 20040203
  2. ASAFLOW (ACETYLSALICYLIC ACID) (TA) [Concomitant]
  3. ATENOLOL (ATENOLOL) (TA) [Concomitant]
  4. KALIUM DURETTES (POTASSIUM CHLORIDE) (TAD) [Concomitant]
  5. LORAMET (TA) [Concomitant]
  6. DAFALGAN [Concomitant]

REACTIONS (4)
  - DIZZINESS [None]
  - HYPOTENSION [None]
  - ORTHOSTATIC HYPOTENSION [None]
  - SYNCOPE [None]
